FAERS Safety Report 7318530-1 (Version None)
Quarter: 2011Q1

REPORT INFORMATION
  Report Type: 
  Country: None (occurrence: None)
  Receive Date: 20110228
  Receipt Date: 20110210
  Transmission Date: 20110831
  Serious: Yes (Hospitalization)
  Sender: FDA-Public Use
  Company Number: US-BAYER-US-2007-007271

PATIENT
  Sex: Male

DRUGS (12)
  1. BETASERON [Suspect]
     Indication: GANGRENE
     Dosage: 8 MIU, TIW
     Route: 058
     Dates: start: 19990514, end: 20090801
  2. VINCRISTINE [Concomitant]
  3. DOXORUBICIN [Concomitant]
  4. MITOXANTRONE HYDROCHLORIDE [Concomitant]
  5. FLOMAX [Concomitant]
  6. NORCO [Concomitant]
  7. RITUXIMAB [Concomitant]
  8. UNCODEABLE ^UNCLASSIFIABLE^ [Concomitant]
  9. CYCLOPHOSPHAMIDE [Concomitant]
  10. PREDNISONE [Concomitant]
  11. BETASERON [Suspect]
     Dosage: 8 MIU, QOD
     Route: 058
     Dates: start: 20100525, end: 20110119
  12. ALLOPURINOL [Concomitant]

REACTIONS (27)
  - URINARY INCONTINENCE [None]
  - HYPERSOMNIA [None]
  - OEDEMA PERIPHERAL [None]
  - MUSCULOSKELETAL CHEST PAIN [None]
  - INTESTINAL HAEMORRHAGE [None]
  - INGUINAL MASS [None]
  - PAIN [None]
  - THROMBOSIS [None]
  - GANGRENE [None]
  - MULTIPLE SCLEROSIS [None]
  - PAIN IN EXTREMITY [None]
  - DIPLOPIA [None]
  - EYE INJURY [None]
  - ALOPECIA [None]
  - HYPOAESTHESIA [None]
  - STRESS [None]
  - ABASIA [None]
  - GAIT DISTURBANCE [None]
  - FROSTBITE [None]
  - MUSCULAR WEAKNESS [None]
  - FATIGUE [None]
  - LYMPHOMA [None]
  - WHITE BLOOD CELL COUNT ABNORMAL [None]
  - ASTHENIA [None]
  - MEMORY IMPAIRMENT [None]
  - ABDOMINAL PAIN UPPER [None]
  - HEART RATE INCREASED [None]
